FAERS Safety Report 23423028 (Version 2)
Quarter: 2024Q1

REPORT INFORMATION
  Report Type: Spontaneous
  Country: US (occurrence: US)
  Receive Date: 20240119
  Receipt Date: 20240206
  Transmission Date: 20240410
  Serious: No
  Sender: FDA-Public Use
  Company Number: US-JNJFOC-20240117013

PATIENT
  Age: 55 Year
  Sex: Female
  Weight: 78 kg

DRUGS (8)
  1. TYLENOL [Suspect]
     Active Substance: ACETAMINOPHEN
     Indication: Headache
     Route: 065
     Dates: start: 2023
  2. TYVASO DPI [Concomitant]
     Active Substance: TREPROSTINIL
     Indication: Pulmonary arterial hypertension
     Route: 055
     Dates: start: 2023, end: 2023
  3. TYVASO DPI [Concomitant]
     Active Substance: TREPROSTINIL
     Route: 055
     Dates: start: 2023, end: 2023
  4. TYVASO DPI [Concomitant]
     Active Substance: TREPROSTINIL
     Route: 055
     Dates: start: 2023
  5. TYVASO DPI [Concomitant]
     Active Substance: TREPROSTINIL
     Route: 055
     Dates: start: 20230926, end: 2023
  6. FUROSEMIDE [Concomitant]
     Active Substance: FUROSEMIDE
     Indication: Product used for unknown indication
     Route: 065
  7. ADCIRCA [Concomitant]
     Active Substance: TADALAFIL
     Indication: Product used for unknown indication
     Route: 065
  8. ADVIL [Concomitant]
     Active Substance: IBUPROFEN
     Indication: Product used for unknown indication
     Route: 065

REACTIONS (3)
  - Nausea [Unknown]
  - Cough [Unknown]
  - Therapeutic product effect incomplete [Unknown]

NARRATIVE: CASE EVENT DATE: 20230101
